FAERS Safety Report 9580410 (Version 1)
Quarter: 2013Q4

REPORT INFORMATION
  Report Type: Spontaneous
  Country: US (occurrence: None)
  Receive Date: 20131001
  Receipt Date: 20131001
  Transmission Date: 20140711
  Serious: Yes (Hospitalization)
  Sender: FDA-Public Use
  Company Number: None

PATIENT
  Age: 64 Year
  Sex: Male
  Weight: 144.8 kg

DRUGS (3)
  1. LINEZOLID [Suspect]
     Indication: ARTHRITIS INFECTIVE
     Route: 042
     Dates: start: 20110216, end: 20110303
  2. LINEZOLID [Suspect]
     Indication: KNEE ARTHROPLASTY
     Route: 042
     Dates: start: 20110216, end: 20110303
  3. ERTAPENEM [Suspect]
     Route: 042
     Dates: start: 20110207, end: 20110303

REACTIONS (2)
  - Dysarthria [None]
  - Hallucination [None]
